FAERS Safety Report 5571123-9 (Version None)
Quarter: 2007Q4

REPORT INFORMATION
  Report Type: 
  Country: None (occurrence: None)
  Receive Date: 20071221
  Receipt Date: 20071214
  Transmission Date: 20080405
  Serious: Yes (Disabling)
  Sender: FDA-Public Use
  Company Number: US-ASTRAZENECA-2007UW25695

PATIENT
  Age: 47 Year
  Sex: Female

DRUGS (19)
  1. CRESTOR [Suspect]
     Route: 048
  2. KLOR-CON [Concomitant]
  3. LASIX [Concomitant]
  4. ATENOLOL [Concomitant]
     Route: 048
  5. COZAAR [Concomitant]
  6. NEXIUM [Concomitant]
     Route: 048
  7. CELEBREX [Concomitant]
  8. NORCO [Concomitant]
     Dosage: 10/325 MG
  9. SONO [Concomitant]
  10. ASPIRIN [Concomitant]
  11. MULTI-VITAMIN [Concomitant]
  12. HAIR, SKIN AND NAIL VITAMINS [Concomitant]
  13. STOOL SOFTENER [Concomitant]
  14. MORPHINE [Concomitant]
  15. AMITRIP [Concomitant]
     Dosage: 10-25 MG
  16. NORVASC [Concomitant]
  17. LEXAPRO [Concomitant]
  18. AMBIEN [Concomitant]
  19. CALCIUM + D [Concomitant]

REACTIONS (2)
  - SPINAL DEFORMITY [None]
  - SPINAL OSTEOARTHRITIS [None]
